FAERS Safety Report 9315449 (Version 2)
Quarter: 2013Q3

REPORT INFORMATION
  Report Type: Spontaneous
  Country: IT (occurrence: IT)
  Receive Date: 20130529
  Receipt Date: 20130717
  Transmission Date: 20140515
  Serious: Yes (Hospitalization)
  Sender: FDA-Public Use
  Company Number: IT-BAXTER-2013BAX019569

PATIENT
  Age: 4 Year
  Sex: Male

DRUGS (7)
  1. HOLOXAN [Suspect]
     Indication: PRODUCT USED FOR UNKNOWN INDICATION
     Route: 042
     Dates: start: 20130516, end: 20130516
  2. VINCRISTINE BY TEVA [Suspect]
     Indication: RHABDOMYOSARCOMA
     Route: 042
     Dates: start: 20130516, end: 20130516
  3. COSMEGEN [Suspect]
     Indication: PRODUCT USED FOR UNKNOWN INDICATION
     Route: 042
     Dates: start: 20130516, end: 20130516
  4. ADRIBLASTINA [Suspect]
     Indication: PRODUCT USED FOR UNKNOWN INDICATION
     Route: 042
     Dates: start: 20130516, end: 20130516
  5. CONTRAMAL [Concomitant]
     Indication: HEADACHE
     Route: 042
  6. DEXAMETHASONE [Concomitant]
     Indication: PRODUCT USED FOR UNKNOWN INDICATION
     Route: 042
  7. ONDANSETRON [Concomitant]
     Indication: PRODUCT USED FOR UNKNOWN INDICATION
     Route: 042
     Dates: start: 20130516, end: 20130516

REACTIONS (3)
  - Hyponatraemia [Recovered/Resolved]
  - Grand mal convulsion [Recovered/Resolved]
  - Inappropriate antidiuretic hormone secretion [Recovered/Resolved]
